FAERS Safety Report 18221843 (Version 1)
Quarter: 2020Q3

REPORT INFORMATION
  Report Type: Spontaneous
  Country: US (occurrence: US)
  Receive Date: 20200901
  Receipt Date: 20200901
  Transmission Date: 20201103
  Serious: Yes (Other)
  Sender: FDA-Public Use
  Company Number: None

PATIENT
  Age: 49 Year
  Sex: Female
  Weight: 58.5 kg

DRUGS (1)
  1. FEMICLEAR EXTERNAL ANTI?ITCH [Suspect]
     Active Substance: CALENDULA OFFICINALIS FLOWERING TOP\MELALEUCA CAJUPUTI LEAF OIL\OLEA EUROPAEA FRUIT VOLATILE OIL
     Indication: VULVOVAGINAL PRURITUS
     Dosage: ?          QUANTITY:2 OINTMENT;?
     Route: 067
     Dates: start: 20200828, end: 20200829

REACTIONS (8)
  - Vulvovaginal burning sensation [None]
  - Product odour abnormal [None]
  - Urticaria [None]
  - Pruritus [None]
  - Pain [None]
  - Rash [None]
  - Hypersensitivity [None]
  - Erythema [None]

NARRATIVE: CASE EVENT DATE: 20200830
